FAERS Safety Report 12508127 (Version 1)
Quarter: 2016Q2

REPORT INFORMATION
  Report Type: Spontaneous
  Country: NO (occurrence: NO)
  Receive Date: 20160629
  Receipt Date: 20160629
  Transmission Date: 20160815
  Serious: Yes (Hospitalization)
  Sender: FDA-Public Use
  Company Number: NO-MALLINCKRODT-T201602559

PATIENT
  Age: 53 Year
  Sex: Female
  Weight: 50 kg

DRUGS (8)
  1. UVADEX [Suspect]
     Active Substance: METHOXSALEN
     Indication: GRAFT VERSUS HOST DISEASE IN SKIN
     Dosage: UNK
     Dates: start: 20160511, end: 20160512
  2. UVADEX [Suspect]
     Active Substance: METHOXSALEN
     Dosage: UNK
     Dates: start: 20160607, end: 20160608
  3. HEPARIN [Concomitant]
     Active Substance: HEPARIN SODIUM
     Dosage: 10:1 10000IE/500 ML NACL
     Route: 065
     Dates: start: 20160621, end: 20160621
  4. HEPARIN [Concomitant]
     Active Substance: HEPARIN SODIUM
     Dosage: 10:1 10000IE/500 ML
     Route: 065
     Dates: start: 20160607, end: 20160608
  5. HEPARIN [Concomitant]
     Active Substance: HEPARIN SODIUM
     Dosage: 10:1 10000IE/500 ML
     Route: 065
     Dates: start: 20160524, end: 20160525
  6. HEPARIN [Concomitant]
     Active Substance: HEPARIN SODIUM
     Indication: ANTICOAGULANT THERAPY
     Dosage: 10:1 10000IE/500 ML
     Route: 065
     Dates: start: 20160511, end: 20160512
  7. UVADEX [Suspect]
     Active Substance: METHOXSALEN
     Indication: SCLERODERMA
     Dosage: UNK
     Dates: start: 20160524, end: 20160525
  8. UVADEX [Suspect]
     Active Substance: METHOXSALEN
     Dosage: UNKNOWN
     Dates: start: 20160621, end: 20160622

REACTIONS (6)
  - Off label use [Unknown]
  - Diarrhoea [Recovered/Resolved]
  - Malaise [Recovered/Resolved]
  - Vomiting [Recovered/Resolved]
  - Abdominal pain [Recovered/Resolved]
  - Pyrexia [Recovered/Resolved]

NARRATIVE: CASE EVENT DATE: 20160525
